FAERS Safety Report 10591056 (Version 2)
Quarter: 2015Q1

REPORT INFORMATION
  Report Type: Spontaneous
  Country: US (occurrence: None)
  Receive Date: 20141110
  Receipt Date: 20150212
  Transmission Date: 20150720
  Serious: Yes (Hospitalization)
  Sender: FDA-Public Use
  Company Number: 1713747-2014-999188

PATIENT
  Age: 47 Year
  Sex: Female
  Weight: 88.91 kg

DRUGS (15)
  1. LIBERTY CYCLER [Concomitant]
     Active Substance: DEVICE
  2. LOW DOSE ASPIRIN [Concomitant]
     Active Substance: ASPIRIN
  3. AQUANIL SKIN CLEANSER [Concomitant]
  4. MYCOPHENOLATE [Concomitant]
     Active Substance: MYCOPHENOLIC ACID
  5. PROTEIN SUPPLEMENT [Concomitant]
     Active Substance: PROTEIN
  6. ZANTAC [Concomitant]
     Active Substance: RANITIDINE HYDROCHLORIDE
  7. MIDODRINE [Concomitant]
     Active Substance: MIDODRINE
  8. NASONEX [Concomitant]
     Active Substance: MOMETASONE FUROATE
  9. SORBITOL. [Concomitant]
     Active Substance: SORBITOL
  10. NEPHROCAPS [Concomitant]
     Active Substance: ASCORBIC ACID\BIOTIN\CYANOCOBALAMIN\FOLIC ACID\NIACIN\PANTOTHENIC ACID\PYRIDOXINE\RIBOFLAVIN\THIAMINE
  11. DELFLEX [Suspect]
     Active Substance: CALCIUM CHLORIDE\DEXTROSE MONOHYDRATE\MAGNESIUM CHLORIDE\SODIUM CHLORIDE\SODIUM LACTATE
     Indication: PERITONEAL DIALYSIS
     Route: 033
  12. LIBERTY CYCLER CASSETTE [Concomitant]
     Active Substance: DEVICE
  13. FERROUS SULFATE [Concomitant]
     Active Substance: FERROUS SULFATE\FERROUS SULFATE, DRIED
  14. RAPAMUNE [Concomitant]
     Active Substance: SIROLIMUS
  15. POTASSIUM CHLORIDE. [Concomitant]
     Active Substance: POTASSIUM CHLORIDE

REACTIONS (1)
  - Peritonitis [None]

NARRATIVE: CASE EVENT DATE: 20140929
